FAERS Safety Report 7888194-7 (Version None)
Quarter: 2011Q4

REPORT INFORMATION
  Report Type: 
  Country: None (occurrence: None)
  Receive Date: 20111103
  Receipt Date: 20111024
  Transmission Date: 20120403
  Serious: Yes (Hospitalization, Other)
  Sender: FDA-Public Use
  Company Number: US-BAYER-201038595NA

PATIENT
  Age: 35 Year
  Sex: Female
  Weight: 141 kg

DRUGS (2)
  1. HYZAAR [Concomitant]
     Indication: HYPERTENSION
     Dosage: UNK UNK, BID
     Route: 048
     Dates: start: 20060601
  2. YASMIN [Suspect]
     Indication: CONTRACEPTION
     Dosage: UNK
     Dates: start: 20050501, end: 20080115

REACTIONS (7)
  - DYSPEPSIA [None]
  - ABDOMINAL PAIN [None]
  - CHOLECYSTITIS ACUTE [None]
  - NAUSEA [None]
  - VOMITING [None]
  - SCLERAL HAEMORRHAGE [None]
  - CHOLELITHIASIS [None]
